FAERS Safety Report 7605024 (Version 4)
Quarter: 2015Q2

REPORT INFORMATION
  Report Type: Spontaneous
  Country: US (occurrence: US)
  Receive Date: 20100924
  Receipt Date: 20150519
  Transmission Date: 20150821
  Serious: Yes (Hospitalization)
  Sender: FDA-Public Use
  Company Number: US-BAYER-201034341NA

PATIENT
  Age: 37 Year
  Sex: Female
  Weight: 88 kg

DRUGS (18)
  1. YAZ [Suspect]
     Active Substance: DROSPIRENONE\ETHINYL ESTRADIOL
     Indication: MENSTRUAL CYCLE MANAGEMENT
     Dosage: UNK UNK, QD
     Route: 048
     Dates: start: 201001, end: 201007
  2. LITHIUM. [Concomitant]
     Active Substance: LITHIUM
     Dosage: 900 MG, UNK, EVERY EVENING
     Route: 048
  3. LORAZEPAM. [Concomitant]
     Active Substance: LORAZEPAM
     Indication: ANXIETY
     Dosage: 1 MG, TID
     Route: 048
     Dates: start: 2009
  4. TRAZODONE [Concomitant]
     Active Substance: TRAZODONE HYDROCHLORIDE
     Dosage: 50 MG, UNK
     Route: 048
     Dates: start: 2009
  5. BUPROPION [Concomitant]
     Active Substance: BUPROPION
     Dosage: 150 MG, UNK
     Route: 048
  6. METOPROLOL [Concomitant]
     Active Substance: METOPROLOL
     Dosage: 25 MG, UNK
     Route: 048
  7. TYLENOL [Concomitant]
     Active Substance: ACETAMINOPHEN
     Dosage: 650 MG, UNK, 4 HOURS AS NEEDED
     Route: 048
  8. ASPIRIN. [Concomitant]
     Active Substance: ASPIRIN
     Dosage: 325 MG, QD
     Route: 048
  9. MULTIVITAMINS [Concomitant]
     Active Substance: VITAMINS
     Dosage: UNK UNK, QD
     Route: 048
  10. PEPCID [Concomitant]
     Active Substance: FAMOTIDINE
  11. ATIVAN [Concomitant]
     Active Substance: LORAZEPAM
  12. PREDNISONE. [Concomitant]
     Active Substance: PREDNISONE
  13. LITHIUM CARBONATE. [Concomitant]
     Active Substance: LITHIUM CARBONATE
     Dosage: 300 MG, UNK
     Route: 048
     Dates: start: 200708
  14. PAROXETINE [Concomitant]
     Active Substance: PAROXETINE\PAROXETINE HYDROCHLORIDE
     Dosage: 20 MG, UNK
     Route: 048
  15. ZANTAC [Concomitant]
     Active Substance: RANITIDINE HYDROCHLORIDE
     Dosage: UNK UNK, BID
  16. CLOBETASOL [Concomitant]
     Active Substance: CLOBETASOL
     Dosage: UNK UNK, BID
     Route: 061
  17. LACTOSE [Concomitant]
     Active Substance: LACTOSE
     Dosage: 30 ML, UNK
  18. BENADRYL [Concomitant]
     Active Substance: DIPHENHYDRAMINE HYDROCHLORIDE
     Dosage: 25 MG, UNK, EVERY EVENING AS NEEDED
     Route: 048

REACTIONS (5)
  - Cerebrovascular accident [Unknown]
  - Lateral medullary syndrome [None]
  - Nystagmus [Unknown]
  - Vertigo [Unknown]
  - Ataxia [Unknown]

NARRATIVE: CASE EVENT DATE: 20100719
